FAERS Safety Report 15153254 (Version 1)
Quarter: 2018Q3

REPORT INFORMATION
  Report Type: Spontaneous
  Country: CH (occurrence: CH)
  Receive Date: 20180717
  Receipt Date: 20180717
  Transmission Date: 20181010
  Serious: Yes (Hospitalization)
  Sender: FDA-Public Use
  Company Number: CH-TEVA-2018-CH-927529

PATIENT
  Age: 77 Year
  Sex: Male
  Weight: 92.6 kg

DRUGS (9)
  1. SORTIS [Concomitant]
     Active Substance: ATORVASTATIN
     Route: 048
  2. LYRICA [Concomitant]
     Active Substance: PREGABALIN
     Route: 048
  3. PANTOZOL [Suspect]
     Active Substance: PANTOPRAZOLE SODIUM
     Dosage: WE DO NOT KNOW FOR EXACTLY HOW LONG THE PATIENT WAS TAKING THE DRUG.
     Route: 048
  4. TRIATEC [Concomitant]
     Route: 048
  5. ZYLORIC [Concomitant]
     Active Substance: ALLOPURINOL
     Route: 048
  6. CEFEPIME [Suspect]
     Active Substance: CEFEPIME HYDROCHLORIDE
     Dosage: THE DRUG WAS ADMINISTERED ONCE DAILY FOR NOSOCOMIAL PNEUMONIA DURING THE PREVIOUS STAY IN
     Route: 041
     Dates: start: 20180325, end: 20180331
  7. PENTOXI [Concomitant]
     Route: 048
  8. SINTROM [Concomitant]
     Active Substance: ACENOCOUMAROL
     Dosage: SINTROM IS GIVEN ACCORDING TO ITS DOSING REGIMEN
     Route: 048
  9. VANCOCIN [Suspect]
     Active Substance: VANCOMYCIN HYDROCHLORIDE
     Dosage: THE DRUG WAS ADMINISTERED ONCE DAILY FOLLOWING SUSPECTED NOSOCOMIAL PNEUMONIA IN
     Route: 041
     Dates: start: 20180325, end: 20180331

REACTIONS (2)
  - Pseudomembranous colitis [Recovered/Resolved]
  - Diarrhoea [Recovered/Resolved]

NARRATIVE: CASE EVENT DATE: 20180327
